APPROVED DRUG PRODUCT: PROPRANOLOL HYDROCHLORIDE AND HYDROCHLOROTHIAZIDE
Active Ingredient: HYDROCHLOROTHIAZIDE; PROPRANOLOL HYDROCHLORIDE
Strength: 25MG;80MG
Dosage Form/Route: TABLET;ORAL
Application: A072043 | Product #001
Applicant: ANI PHARMACEUTICALS INC
Approved: Mar 14, 1988 | RLD: No | RS: No | Type: DISCN